FAERS Safety Report 10133255 (Version 2)
Quarter: 2014Q2

REPORT INFORMATION
  Report Type: Other
  Country: GB (occurrence: GB)
  Receive Date: 20140428
  Receipt Date: 20140506
  Transmission Date: 20141212
  Serious: Yes (Hospitalization)
  Sender: FDA-Public Use
  Company Number: GB-SHIRE-GB201401516

PATIENT
  Age: 49 Year
  Sex: Male
  Weight: 67.6 kg

DRUGS (1)
  1. VPRIV [Suspect]
     Indication: GAUCHER^S DISEASE
     Dosage: 1200 IU, 1X/2WKS (FORTNIGHTLY)
     Route: 041
     Dates: start: 20120803

REACTIONS (3)
  - Syncope [Unknown]
  - Pain in extremity [Unknown]
  - Bone pain [Unknown]
